FAERS Safety Report 25144665 (Version 1)
Quarter: 2025Q2

REPORT INFORMATION
  Report Type: Report from Study
  Country: US (occurrence: US)
  Receive Date: 20250401
  Receipt Date: 20250401
  Transmission Date: 20250717
  Serious: No
  Sender: SUNOVION
  Company Number: US-SMPA-2025SPA002657AA

PATIENT

DRUGS (3)
  1. ORGOVYX [Suspect]
     Active Substance: RELUGOLIX
     Indication: Prostate cancer
     Dosage: 360 MG, SINGLE
     Route: 048
  2. ORGOVYX [Suspect]
     Active Substance: RELUGOLIX
     Dosage: 120 MG, QD
     Route: 048
     Dates: start: 202308
  3. ABIRATERONE [Concomitant]
     Active Substance: ABIRATERONE
     Route: 065

REACTIONS (6)
  - Muscle atrophy [Unknown]
  - Faeces soft [Unknown]
  - Frequent bowel movements [Unknown]
  - Fatigue [Unknown]
  - Headache [Unknown]
  - Asthenia [Unknown]
